FAERS Safety Report 8867370 (Version 1)
Quarter: 2012Q4

REPORT INFORMATION
  Report Type: 
  Country: US (occurrence: US)
  Receive Date: 20121025
  Receipt Date: 20121025
  Transmission Date: 20130627
  Serious: No
  Sender: FDA-Public Use
  Company Number: US-AMGEN-USASP2012016105

PATIENT
  Age: 63 Year
  Sex: Female

DRUGS (6)
  1. ENBREL [Suspect]
     Indication: PSORIASIS
     Dosage: 50 mg, qwk
     Route: 058
  2. CALCIUM + VITAMIN D                /01483701/ [Concomitant]
     Dosage: UNK
  3. LEVOTHYROXIN [Concomitant]
     Dosage: 25 mug, UNK
  4. VYTORIN [Concomitant]
     Dosage: UNK
  5. MULTIVITAMIN                       /00097801/ [Concomitant]
     Dosage: UNK
  6. VITAMIN C                          /00008001/ [Concomitant]
     Dosage: 500 mg, UNK

REACTIONS (2)
  - Nasopharyngitis [Unknown]
  - Influenza [Unknown]
